FAERS Safety Report 18406319 (Version 1)
Quarter: 2020Q4

REPORT INFORMATION
  Report Type: Spontaneous
  Country: US (occurrence: US)
  Receive Date: 20201020
  Receipt Date: 20201020
  Transmission Date: 20210114
  Serious: Yes (Other)
  Sender: FDA-Public Use
  Company Number: US-PURDUE-USA-2020-0171566

PATIENT
  Sex: Male

DRUGS (1)
  1. COLACE [Suspect]
     Active Substance: DOCUSATE SODIUM
     Indication: CONSTIPATION
     Dosage: 1 CAPSL, DAILY
     Route: 048
     Dates: start: 20201016

REACTIONS (2)
  - Nephrolithiasis [Unknown]
  - Drug ineffective [Unknown]
